FAERS Safety Report 23847111 (Version 1)
Quarter: 2024Q2

REPORT INFORMATION
  Report Type: Other
  Country: FR (occurrence: FR)
  Receive Date: 20240513
  Receipt Date: 20240513
  Transmission Date: 20240716
  Serious: Yes (Death)
  Sender: FDA-Public Use
  Company Number: None

PATIENT

DRUGS (6)
  1. VENLAFAXINE [Suspect]
     Active Substance: VENLAFAXINE HYDROCHLORIDE
     Indication: Mental disorder
     Dosage: 150 MILLIGRAM, QD
     Route: 048
     Dates: start: 20230607
  2. ZOPICLONE [Suspect]
     Active Substance: ZOPICLONE
     Indication: Mental disorder
     Dosage: 10.25 MILLIGRAM, QD
     Route: 048
     Dates: start: 20230717
  3. QUETIAPINE [Suspect]
     Active Substance: QUETIAPINE
     Indication: Mental disorder
     Dosage: 450 MILLIGRAM, QD
     Route: 048
     Dates: start: 20230828
  4. COVERAM [Suspect]
     Active Substance: AMLODIPINE\PERINDOPRIL
     Indication: Mental disorder
     Dosage: 1 DOSAGE FORM, QD
     Route: 048
     Dates: start: 20230426
  5. OXAZEPAM [Suspect]
     Active Substance: OXAZEPAM
     Indication: Mental disorder
     Dosage: 40 MILLIGRAM, QD
     Route: 048
     Dates: start: 20230323
  6. GLYCOPYRRONIUM\INDACATEROL [Concomitant]
     Active Substance: GLYCOPYRRONIUM\INDACATEROL
     Indication: Product used for unknown indication
     Dosage: UNK
     Route: 065

REACTIONS (1)
  - Death [Fatal]

NARRATIVE: CASE EVENT DATE: 20240130
